FAERS Safety Report 18252169 (Version 3)
Quarter: 2020Q3

REPORT INFORMATION
  Report Type: Spontaneous
  Country: US (occurrence: US)
  Receive Date: 20200910
  Receipt Date: 20200910
  Transmission Date: 20201103
  Serious: No
  Sender: FDA-Public Use
  Company Number: US-FARMAPROD-202004-0574

PATIENT
  Sex: Male
  Weight: 91.25 kg

DRUGS (19)
  1. LEVOTHYROXINE SODIUM. [Concomitant]
     Active Substance: LEVOTHYROXINE SODIUM
  2. OXERVATE [Suspect]
     Active Substance: CENEGERMIN-BKBJ
     Indication: NEUROTROPHIC KERATOPATHY
     Dates: start: 20200416
  3. VITAMINE B?12 [Concomitant]
  4. FINASTERIDE. [Concomitant]
     Active Substance: FINASTERIDE
  5. LUMIGAN [Concomitant]
     Active Substance: BIMATOPROST
  6. PREGABALIN. [Concomitant]
     Active Substance: PREGABALIN
  7. LOSARTAN?HYDROCHLOROTHIAZIDE [Concomitant]
     Active Substance: HYDROCHLOROTHIAZIDE\LOSARTAN
  8. CETIRIZINE HCL [Concomitant]
     Active Substance: CETIRIZINE HYDROCHLORIDE
  9. DEXAMETHASONE. [Concomitant]
     Active Substance: DEXAMETHASONE
  10. OXERVATE [Suspect]
     Active Substance: CENEGERMIN-BKBJ
     Indication: HYPOAESTHESIA EYE
  11. TYLENOL EXTRA [Concomitant]
  12. OMEGA?3?FISH OIL/VITAMINE D3 [Concomitant]
  13. VITAMINE D?400 [Concomitant]
  14. ASPIRINE [Concomitant]
     Active Substance: ASPIRIN
  15. NYSTATIN?TRIAMCINOLONE [Concomitant]
  16. FLUOCINONIDE. [Concomitant]
     Active Substance: FLUOCINONIDE
  17. MONTELUKAST SODIUM. [Concomitant]
     Active Substance: MONTELUKAST SODIUM
  18. TIMOLOL MALEATE. [Concomitant]
     Active Substance: TIMOLOL MALEATE
  19. VITAMINE C [Concomitant]
     Active Substance: ASCORBIC ACID

REACTIONS (3)
  - Eye pain [Unknown]
  - Product dose omission issue [Unknown]
  - Therapeutic response unexpected [Unknown]
